FAERS Safety Report 9121329 (Version 1)
Quarter: 2013Q1

REPORT INFORMATION
  Report Type: Spontaneous
  Country: BR (occurrence: BR)
  Receive Date: 20130225
  Receipt Date: 20130225
  Transmission Date: 20140127
  Serious: Yes (Other)
  Sender: FDA-Public Use
  Company Number: BR-US-EMD SERONO, INC.-7142440

PATIENT
  Sex: Female

DRUGS (3)
  1. REBIF [Suspect]
     Indication: RELAPSING-REMITTING MULTIPLE SCLEROSIS
     Dates: start: 20050509
  2. MANTIDAM (MANTADAN) [Concomitant]
     Indication: PRODUCT USED FOR UNKNOWN INDICATION
  3. SERTRALINE [Concomitant]
     Indication: PRODUCT USED FOR UNKNOWN INDICATION

REACTIONS (9)
  - Petit mal epilepsy [Recovered/Resolved]
  - Convulsion [Recovered/Resolved]
  - Dyspnoea [Unknown]
  - Restless legs syndrome [Unknown]
  - Stress [Unknown]
  - Insomnia [Unknown]
  - Fatigue [Unknown]
  - Injection site erythema [Unknown]
  - Injection site nodule [Unknown]
